FAERS Safety Report 10978079 (Version 1)
Quarter: 2015Q2

REPORT INFORMATION
  Report Type: Spontaneous
  Country: US (occurrence: US)
  Receive Date: 20150402
  Receipt Date: 20150402
  Transmission Date: 20150821
  Serious: No
  Sender: FDA-Public Use
  Company Number: US-GLAXOSMITHKLINE-US2015GSK043258

PATIENT
  Sex: Male
  Weight: 70.75 kg

DRUGS (18)
  1. MAALOX ANTACID [Concomitant]
     Active Substance: ALUMINUM HYDROXIDE\DIMETHICONE\MAGNESIUM HYDROXIDE
  2. POTASSIUM [Concomitant]
     Active Substance: POTASSIUM
  3. IODINE [Concomitant]
     Active Substance: IODINE
  4. VITAMIN C [Concomitant]
     Active Substance: ASCORBIC ACID
  5. CALCIUM [Concomitant]
     Active Substance: CALCIUM
  6. METOPROLOL [Concomitant]
     Active Substance: METOPROLOL
  7. TERAZOSIN [Concomitant]
     Active Substance: TERAZOSIN\TERAZOSIN HYDROCHLORIDE
  8. TAFINLAR [Suspect]
     Active Substance: DABRAFENIB MESYLATE
     Indication: MALIGNANT MELANOMA
     Dosage: 150 MG, BID
     Route: 048
     Dates: start: 201412
  9. ZELBORAF [Concomitant]
     Active Substance: VEMURAFENIB
  10. VITAMIN D3 [Concomitant]
     Active Substance: CHOLECALCIFEROL
  11. COQ10 [Concomitant]
     Active Substance: UBIDECARENONE
  12. TRAMADOL [Concomitant]
     Active Substance: TRAMADOL
  13. OCUVITE [Concomitant]
     Active Substance: VITAMINS
  14. SENNA [Concomitant]
     Active Substance: SENNA LEAF\SENNOSIDES\SENNOSIDES A AND B
  15. NIACIN. [Concomitant]
     Active Substance: NIACIN
  16. CANNABIS [Concomitant]
     Active Substance: CANNABIS SATIVA SUBSP. INDICA TOP
  17. MEKINIST [Suspect]
     Active Substance: TRAMETINIB DIMETHYL SULFOXIDE
     Indication: MALIGNANT MELANOMA
     Dosage: 2 MG, QD
     Route: 048
     Dates: start: 201412
  18. LOSARTAN [Concomitant]
     Active Substance: LOSARTAN

REACTIONS (1)
  - Rash [Unknown]
